FAERS Safety Report 5049687-3 (Version None)
Quarter: 2006Q4

REPORT INFORMATION
  Report Type: 
  Country: None (occurrence: None)
  Receive Date: 20060707
  Receipt Date: 20060629
  Transmission Date: 20070319
  Serious: Yes (Death)
  Sender: FDA-Public Use
  Company Number: PERC20060021

PATIENT
  Age: 40 Year
  Sex: Male
  Weight: 106.5953 kg

DRUGS (6)
  1. ACETAMINOPHEN AND OXYCODONE HCL [Suspect]
     Indication: PAIN
     Dosage: PO
     Route: 048
     Dates: end: 20051101
  2. DURAGESIC-100 [Suspect]
     Indication: PAIN
     Dosage: OTHR
     Route: 050
     Dates: end: 20051114
  3. HYDROCODONE [Suspect]
     Indication: PAIN
     Dates: end: 20051101
  4. XANAX [Suspect]
     Dates: end: 20051101
  5. CANNABIS [Suspect]
     Dates: end: 20051101
  6. TOPAMAX [Suspect]
     Indication: NEURALGIA
     Dosage: 2 TABS DAILY PO
     Route: 048
     Dates: start: 20041029, end: 20051101

REACTIONS (14)
  - ACCIDENTAL DEATH [None]
  - BRONCHOPNEUMONIA [None]
  - CARDIAC HYPERTROPHY [None]
  - CARDIO-RESPIRATORY ARREST [None]
  - DRUG INTERACTION [None]
  - EMPHYSEMA [None]
  - INCORRECT DOSE ADMINISTERED [None]
  - MULTIPLE DRUG OVERDOSE [None]
  - MUSCULOSKELETAL STIFFNESS [None]
  - OEDEMA [None]
  - PULMONARY OEDEMA [None]
  - ROAD TRAFFIC ACCIDENT [None]
  - TOE AMPUTATION [None]
  - WHIPLASH INJURY [None]
